FAERS Safety Report 9114588 (Version 1)
Quarter: 2013Q1

REPORT INFORMATION
  Report Type: Other
  Country: IT (occurrence: IT)
  Receive Date: 20130128
  Receipt Date: 20130128
  Transmission Date: 20140127
  Serious: Yes (Hospitalization)
  Sender: FDA-Public Use
  Company Number: IT-WATSON-2013-00908

PATIENT
  Age: 64 Year
  Sex: Female

DRUGS (1)
  1. TRAMADOL HYDROCHLORIDE AND ACETAMINOPHEN [Suspect]
     Indication: TOOTHACHE
     Dosage: 37.5+325MG, DAILY
     Route: 048
     Dates: start: 20121115, end: 20121116

REACTIONS (2)
  - Confusional state [Recovered/Resolved]
  - Vomiting [Recovered/Resolved]
